FAERS Safety Report 15048464 (Version 1)
Quarter: 2018Q2

REPORT INFORMATION
  Report Type: Report from Study
  Country: DE (occurrence: DE)
  Receive Date: 20180622
  Receipt Date: 20180622
  Transmission Date: 20180711
  Serious: Yes (Other)
  Sender: FDA-Public Use
  Company Number: DE-ADIENNEP-2018AD000333

PATIENT
  Sex: Female
  Weight: 83 kg

DRUGS (3)
  1. CARBOPLATIN. [Concomitant]
     Active Substance: CARBOPLATIN
     Indication: HODGKIN^S DISEASE
     Dosage: 999 MG/M2
     Dates: start: 20160505
  2. MITOXANTRONE [Concomitant]
     Active Substance: MITOXANTRONE HYDROCHLORIDE
     Indication: HODGKIN^S DISEASE
     Dosage: 39.9 MG/M2
     Dates: start: 20160505
  3. TEPADINA [Suspect]
     Active Substance: THIOTEPA
     Indication: HODGKIN^S DISEASE
     Dosage: 750 MG/M2
     Dates: start: 20160505

REACTIONS (9)
  - Febrile neutropenia [Recovered/Resolved]
  - Thrombocytopenia [Recovered/Resolved]
  - Neutropenia [Recovered/Resolved]
  - Enterococcal infection [Recovered/Resolved]
  - Mucosal inflammation [Recovered/Resolved]
  - Anaemia [Recovered/Resolved]
  - Leukopenia [Recovered/Resolved]
  - Staphylococcal infection [Recovered/Resolved]
  - Skin erosion [Recovered/Resolved]

NARRATIVE: CASE EVENT DATE: 20160509
